FAERS Safety Report 24699483 (Version 3)
Quarter: 2024Q4

REPORT INFORMATION
  Report Type: Report from Study
  Country: IL (occurrence: IL)
  Receive Date: 20241205
  Receipt Date: 20241213
  Transmission Date: 20250114
  Serious: Yes (Hospitalization, Other)
  Sender: ABBVIE
  Company Number: IL-ABBVIE-6029519

PATIENT
  Age: 81 Year
  Sex: Male

DRUGS (3)
  1. FOSCARBIDOPA\FOSLEVODOPA [Suspect]
     Active Substance: FOSCARBIDOPA\FOSLEVODOPA
     Indication: Parkinson^s disease
     Route: 058
     Dates: start: 20241124
  2. FOSCARBIDOPA\FOSLEVODOPA [Suspect]
     Active Substance: FOSCARBIDOPA\FOSLEVODOPA
     Dosage: LOADING DOSE-1.2(ML) BASE IR-0.5(ML/H) HIGH IR-0.6(ML/H) LOW IR-0.4(ML/H) EXTRA DOSAGE-0.3(ML)
     Route: 058
     Dates: start: 20241204, end: 20241204
  3. FOSCARBIDOPA\FOSLEVODOPA [Suspect]
     Active Substance: FOSCARBIDOPA\FOSLEVODOPA
     Dosage: LOADING DOSE-1.2(ML) BASE IR-0.5(ML/H) HIGH IR-0.6(ML/H) LOW IR-0.4(ML/H) EXTRA DOSAGE-0.3(ML)
     Route: 058
     Dates: start: 20241125

REACTIONS (8)
  - General physical health deterioration [Unknown]
  - On and off phenomenon [Unknown]
  - Decreased appetite [Unknown]
  - On and off phenomenon [Unknown]
  - Asthenia [Unknown]
  - Dyskinesia [Unknown]
  - Food refusal [Unknown]
  - Dyskinesia [Unknown]

NARRATIVE: CASE EVENT DATE: 20240101
